FAERS Safety Report 11157617 (Version 1)
Quarter: 2015Q2

REPORT INFORMATION
  Report Type: Spontaneous
  Country: US (occurrence: None)
  Receive Date: 20150601
  Receipt Date: 20150601
  Transmission Date: 20150821
  Serious: Yes (Other)
  Sender: FDA-Public Use
  Company Number: PR-AE15-000410

PATIENT
  Age: 51 Year
  Sex: Female

DRUGS (1)
  1. GOODYS COOL ORANGE HEADACHE [Suspect]
     Active Substance: ACETAMINOPHEN\ASPIRIN\CAFFEINE
     Indication: ANALGESIC THERAPY
     Route: 048
     Dates: start: 20150506

REACTIONS (5)
  - Dizziness [None]
  - Product taste abnormal [None]
  - Skin exfoliation [None]
  - Oral discomfort [None]
  - Swollen tongue [None]

NARRATIVE: CASE EVENT DATE: 20150507
